FAERS Safety Report 14243167 (Version 3)
Quarter: 2017Q4

REPORT INFORMATION
  Report Type: Spontaneous
  Country: US (occurrence: US)
  Receive Date: 20171201
  Receipt Date: 20171226
  Transmission Date: 20180321
  Serious: Yes (Death)
  Sender: FDA-Public Use
  Company Number: US-CELGENEUS-USA-20171108407

PATIENT
  Age: 72 Year
  Sex: Male

DRUGS (4)
  1. REVLIMID [Suspect]
     Active Substance: LENALIDOMIDE
     Indication: MANTLE CELL LYMPHOMA
     Dosage: 20 MILLIGRAM
     Route: 048
     Dates: start: 20170922
  2. RITUXAN [Concomitant]
     Active Substance: RITUXIMAB
     Indication: MANTLE CELL LYMPHOMA
     Dosage: 755 MILLIGRAM
     Route: 041
     Dates: start: 20170922, end: 20171020
  3. DEXAMETHASONE. [Concomitant]
     Active Substance: DEXAMETHASONE
     Indication: MANTLE CELL LYMPHOMA
     Dosage: 4 MILLIGRAM
     Route: 048
     Dates: start: 20170922, end: 20171006
  4. REVLIMID [Suspect]
     Active Substance: LENALIDOMIDE
     Dosage: 15 MILLIGRAM
     Route: 048
     Dates: start: 201710, end: 20171020

REACTIONS (3)
  - Pneumonitis [Fatal]
  - Acute respiratory distress syndrome [Fatal]
  - Cytomegalovirus infection [Fatal]

NARRATIVE: CASE EVENT DATE: 20171119
